FAERS Safety Report 21324479 (Version 1)
Quarter: 2022Q3

REPORT INFORMATION
  Report Type: Spontaneous
  Country: US (occurrence: None)
  Receive Date: 20220911
  Receipt Date: 20220911
  Transmission Date: 20221027
  Serious: Yes (Hospitalization)
  Sender: FDA-Public Use
  Company Number: None

PATIENT
  Age: 62 Year
  Sex: Female
  Weight: 68.8 kg

DRUGS (1)
  1. TEPROTUMUMAB [Suspect]
     Active Substance: TEPROTUMUMAB
     Route: 042
     Dates: start: 20211231, end: 20220325

REACTIONS (11)
  - Mental status changes [None]
  - Cognitive disorder [None]
  - Mood swings [None]
  - Amnesia [None]
  - Aphasia [None]
  - Insomnia [None]
  - Tremor [None]
  - Anxiety [None]
  - Speech disorder [None]
  - Blood thyroid stimulating hormone increased [None]
  - Lumbar puncture abnormal [None]

NARRATIVE: CASE EVENT DATE: 20220404
